FAERS Safety Report 4484987-7 (Version None)
Quarter: 2004Q3

REPORT INFORMATION
  Report Type: 
  Country: None (occurrence: None)
  Receive Date: 20040921
  Receipt Date: 20030922
  Transmission Date: 20050211
  Serious: Yes (Hospitalization)
  Sender: FDA-Public Use
  Company Number: 163-20785-03090602(0)

PATIENT
  Age: 43 Year
  Sex: Male

DRUGS (2)
  1. THALOMID [Suspect]
     Indication: HAEMOGLOBIN DECREASED
     Dosage: 100 MG, DAILY, ORAL
     Route: 048
     Dates: start: 20030701, end: 20040201
  2. MULTIVITAMIN [Concomitant]

REACTIONS (5)
  - ACUTE LEUKAEMIA [None]
  - CONSTIPATION [None]
  - DRY MOUTH [None]
  - HYPERSOMNIA [None]
  - SEXUAL DYSFUNCTION [None]
